FAERS Safety Report 9308910 (Version 2)
Quarter: 2013Q2

REPORT INFORMATION
  Report Type: Report from Study
  Country: FR (occurrence: FR)
  Receive Date: 20130524
  Receipt Date: 20130531
  Transmission Date: 20140414
  Serious: Yes (Death, Hospitalization)
  Sender: FDA-Public Use
  Company Number: FR-PFIZER INC-2013156535

PATIENT
  Sex: Male
  Weight: 67 kg

DRUGS (2)
  1. TEMSIROLIMUS [Suspect]
     Indication: MANTLE CELL LYMPHOMA
     Dosage: 75 MG, WEEKLY
     Dates: start: 20111208, end: 20111226
  2. TEMSIROLIMUS [Suspect]
     Dosage: 75 MG, WEEKLY
     Dates: start: 20120227, end: 20120306

REACTIONS (11)
  - Pulmonary sepsis [Fatal]
  - Thrombocytopenia [Unknown]
  - Hepatomegaly [Unknown]
  - Splenomegaly [Unknown]
  - Fungal infection [Unknown]
  - Dysgeusia [Unknown]
  - Decreased appetite [Unknown]
  - Asthenia [Unknown]
  - Epistaxis [Unknown]
  - Bronchitis [Unknown]
  - Night sweats [Unknown]
